FAERS Safety Report 14379581 (Version 1)
Quarter: 2018Q1

REPORT INFORMATION
  Report Type: Spontaneous
  Country: MY (occurrence: MY)
  Receive Date: 20180112
  Receipt Date: 20180112
  Transmission Date: 20180509
  Serious: Yes (Hospitalization, Other)
  Sender: FDA-Public Use
  Company Number: MY-VISTAPHARM, INC.-VER201711-001174

PATIENT
  Age: 65 Year
  Sex: Male

DRUGS (20)
  1. WARFARIN [Suspect]
     Active Substance: WARFARIN
     Indication: ANTICOAGULANT THERAPY
     Dates: start: 2001
  2. WARFARIN [Suspect]
     Active Substance: WARFARIN
     Route: 048
  3. WARFARIN [Suspect]
     Active Substance: WARFARIN
  4. WARFARIN [Suspect]
     Active Substance: WARFARIN
  5. WARFARIN [Suspect]
     Active Substance: WARFARIN
  6. METOPROLOL. [Concomitant]
     Active Substance: METOPROLOL
     Indication: HYPERTENSION
     Route: 048
  7. PHENYTOIN. [Suspect]
     Active Substance: PHENYTOIN
     Dates: start: 20040102
  8. WARFARIN [Suspect]
     Active Substance: WARFARIN
  9. NIFEDIPINE. [Concomitant]
     Active Substance: NIFEDIPINE
     Indication: HYPERTENSION
     Route: 048
  10. PHENYTOIN. [Suspect]
     Active Substance: PHENYTOIN
     Indication: EPILEPSY
     Route: 048
     Dates: end: 20031206
  11. WARFARIN [Suspect]
     Active Substance: WARFARIN
  12. WARFARIN [Suspect]
     Active Substance: WARFARIN
  13. WARFARIN [Suspect]
     Active Substance: WARFARIN
  14. PHENYTOIN. [Suspect]
     Active Substance: PHENYTOIN
  15. PHENYTOIN. [Suspect]
     Active Substance: PHENYTOIN
     Route: 048
  16. WARFARIN [Suspect]
     Active Substance: WARFARIN
     Route: 048
     Dates: start: 20031206
  17. WARFARIN [Suspect]
     Active Substance: WARFARIN
  18. GEMFIBROZIL. [Suspect]
     Active Substance: GEMFIBROZIL
     Indication: HYPERLIPIDAEMIA
     Route: 048
  19. WARFARIN [Suspect]
     Active Substance: WARFARIN
  20. WARFARIN [Suspect]
     Active Substance: WARFARIN

REACTIONS (8)
  - Peripheral swelling [Unknown]
  - Haemorrhage [Unknown]
  - Drug interaction [Unknown]
  - Dyspnoea [Unknown]
  - Gingival bleeding [Unknown]
  - Contusion [Unknown]
  - Toxicity to various agents [Unknown]
  - International normalised ratio fluctuation [Recovered/Resolved]
